FAERS Safety Report 25346643 (Version 1)
Quarter: 2025Q2

REPORT INFORMATION
  Report Type: Spontaneous
  Country: TH (occurrence: TH)
  Receive Date: 20250522
  Receipt Date: 20250522
  Transmission Date: 20250716
  Serious: Yes (Other)
  Sender: NOVARTIS
  Company Number: TH-002147023-NVSC2025TH079391

PATIENT
  Age: 86 Year
  Sex: Female

DRUGS (2)
  1. RIBOCICLIB [Suspect]
     Active Substance: RIBOCICLIB
     Indication: Breast cancer
     Route: 065
     Dates: start: 202303, end: 202502
  2. LETROZOLE [Concomitant]
     Active Substance: LETROZOLE
     Indication: Breast cancer
     Route: 065
     Dates: start: 202303, end: 202502

REACTIONS (13)
  - Electrocardiogram QT prolonged [Recovering/Resolving]
  - Lung neoplasm malignant [Unknown]
  - Hypertension [Recovering/Resolving]
  - Blood magnesium increased [Recovering/Resolving]
  - Breast mass [Unknown]
  - Hepatic mass [Unknown]
  - Pulmonary mass [Unknown]
  - Haemoglobin decreased [Unknown]
  - White blood cell count decreased [Unknown]
  - Platelet count increased [Unknown]
  - Lung disorder [Unknown]
  - Hypotension [Unknown]
  - Neutrophil count decreased [Unknown]
